FAERS Safety Report 6462549-X (Version None)
Quarter: 2009Q4

REPORT INFORMATION
  Report Type: 
  Country: None (occurrence: None)
  Receive Date: 20091130
  Receipt Date: 20091120
  Transmission Date: 20100525
  Serious: Yes (Other)
  Sender: FDA-Public Use
  Company Number: BR-ASTRAZENECA-2009SE28208

PATIENT
  Age: 14 Year
  Sex: Female
  Weight: 22 kg

DRUGS (14)
  1. NEXIUM [Suspect]
     Indication: GASTROOESOPHAGEAL REFLUX DISEASE
     Route: 048
     Dates: start: 20070101, end: 20090801
  2. TEGRETOL [Concomitant]
     Indication: CONVULSION
     Route: 048
     Dates: start: 20020101
  3. DEPAKENE [Concomitant]
     Indication: CONVULSION
     Route: 048
     Dates: start: 20020101
  4. GARDENAL [Concomitant]
     Indication: CONVULSION
     Dosage: 70 DROPS DAILY
     Route: 048
     Dates: start: 20020101
  5. NEOZINE [Concomitant]
     Indication: CONVULSION
     Dosage: 30 DROPS
     Route: 048
     Dates: start: 20060101
  6. DOMPERIDONE [Concomitant]
     Indication: GASTROOESOPHAGEAL REFLUX DISEASE
     Route: 048
     Dates: start: 20000101
  7. PREDNISOLONE [Concomitant]
     Indication: PNEUMONIA
     Route: 048
     Dates: start: 20060101
  8. PREDNISOLONE [Concomitant]
     Indication: DYSPNOEA
     Route: 048
     Dates: start: 20060101
  9. GENTAMICINE [Concomitant]
     Indication: PNEUMONIA
     Route: 055
     Dates: start: 20050101
  10. ALVESCO [Concomitant]
     Indication: INCREASED BRONCHIAL SECRETION
     Route: 045
     Dates: start: 20050101
  11. GLYCERINE [Concomitant]
     Indication: ENEMA ADMINISTRATION
     Dosage: 2 DAYS
     Dates: start: 19950101
  12. LASIX [Concomitant]
     Indication: FLUID RETENTION
     Route: 048
     Dates: start: 20060101
  13. LABEL [Concomitant]
     Indication: GASTROINTESTINAL DISORDER
     Route: 048
     Dates: start: 20020101
  14. ALUMINUM HYDROXIDE GEL [Concomitant]
     Indication: NAUSEA
     Route: 048
     Dates: start: 20020101

REACTIONS (10)
  - BRONCHOSPASM [None]
  - CONSTIPATION [None]
  - CONVULSION [None]
  - COUGH [None]
  - DYSPNOEA [None]
  - ECZEMA [None]
  - GASTROOESOPHAGEAL REFLUX DISEASE [None]
  - INSOMNIA [None]
  - NASOPHARYNGITIS [None]
  - PNEUMONIA [None]
